FAERS Safety Report 4372242-5 (Version None)
Quarter: 2004Q2

REPORT INFORMATION
  Report Type: 
  Country: None (occurrence: None)
  Receive Date: 20040601
  Receipt Date: 20040517
  Transmission Date: 20050107
  Serious: Yes (Death, Hospitalization)
  Sender: FDA-Public Use
  Company Number: 2004-BP-03835MX

PATIENT
  Age: 65 Year
  Sex: Male

DRUGS (5)
  1. SPIRIVA [Suspect]
     Indication: CHRONIC OBSTRUCTIVE AIRWAYS DISEASE
     Dosage: 18 MCG (18 MCG,1 KAI OD)
     Route: 055
  2. LANOXIN (DIGOXIN) (NR) [Concomitant]
  3. CEPHALOSPORIN (NR) [Concomitant]
  4. THEOPHYLLINE (NR) [Concomitant]
  5. NON SPECIFIED EXPECTORANT (NR) [Concomitant]

REACTIONS (4)
  - CARDIAC ARREST [None]
  - CONDITION AGGRAVATED [None]
  - PNEUMONIA [None]
  - RENAL FAILURE [None]
